FAERS Safety Report 23401676 (Version 4)
Quarter: 2024Q2

REPORT INFORMATION
  Report Type: Report from Study
  Country: US (occurrence: US)
  Receive Date: 20240115
  Receipt Date: 20240516
  Transmission Date: 20240716
  Serious: Yes (Hospitalization)
  Sender: FDA-Public Use
  Company Number: US-ABBVIE-5584922

PATIENT
  Sex: Male

DRUGS (2)
  1. VENCLEXTA [Suspect]
     Active Substance: VENETOCLAX
     Indication: Chronic lymphocytic leukaemia
     Dosage: TAKE FOUR TABLETS BY MOUTH ONCE DAILY WITH FOOD AND A FULL GLASS OF WATER,?FORM STRENGTH 100 MILL...
     Route: 048
     Dates: end: 2023
  2. VENCLEXTA [Suspect]
     Active Substance: VENETOCLAX
     Indication: Chronic lymphocytic leukaemia
     Dosage: FORM STRENGTH: 100 MILLIGRAM, DOSE REDUCED, THREE TABLETS DAILY
     Route: 048
     Dates: start: 202311

REACTIONS (3)
  - Viral infection [Unknown]
  - Diarrhoea [Recovering/Resolving]
  - Vomiting [Unknown]
